FAERS Safety Report 8965066 (Version 5)
Quarter: 2014Q2

REPORT INFORMATION
  Report Type: Report from Study
  Country: CN (occurrence: CN)
  Receive Date: 20121213
  Receipt Date: 20140519
  Transmission Date: 20141212
  Serious: Yes (Death, Hospitalization, Other)
  Sender: FDA-Public Use
  Company Number: CN-CELGENEUS-035-CCAZA-12112787

PATIENT
  Age: 37 Year
  Sex: Male
  Weight: 64 kg

DRUGS (8)
  1. AZACITIDINE INJECTABLE [Suspect]
     Indication: MYELODYSPLASTIC SYNDROME
     Dosage: 75 MILLIGRAM/SQ. METER
     Route: 065
     Dates: start: 20120824, end: 20120830
  2. AZACITIDINE INJECTABLE [Suspect]
     Dosage: 50 MILLIGRAM/SQ. METER
     Route: 065
     Dates: start: 20121017, end: 20121023
  3. ONDANSETRON [Concomitant]
     Indication: PROPHYLAXIS OF NAUSEA AND VOMITING
     Dosage: 8 MILLIGRAM
     Route: 041
     Dates: start: 20121017, end: 20121023
  4. NOREPINEPHRINE [Concomitant]
     Indication: BLOOD PRESSURE
     Dosage: 2 MILLIGRAM
     Route: 061
     Dates: start: 20121209, end: 20121209
  5. NOREPINEPHRINE [Concomitant]
     Dosage: 18 MILLIGRAM
     Route: 041
     Dates: start: 20121210, end: 20121210
  6. DOPAMINE [Concomitant]
     Indication: BLOOD PRESSURE
     Dosage: 180 MILLIGRAM
     Route: 041
     Dates: start: 20121209, end: 20121209
  7. DOPAMINE [Concomitant]
     Dosage: 360 MILLIGRAM
     Route: 041
     Dates: start: 20121209, end: 20121209
  8. DOPAMINE [Concomitant]
     Dosage: 360 MILLIGRAM
     Route: 041
     Dates: start: 20121210, end: 20121210

REACTIONS (2)
  - Pneumonia [Fatal]
  - Myelitis [Not Recovered/Not Resolved]
